FAERS Safety Report 16882768 (Version 1)
Quarter: 2019Q4

REPORT INFORMATION
  Report Type: Spontaneous
  Country: DE (occurrence: DE)
  Receive Date: 20191003
  Receipt Date: 20191003
  Transmission Date: 20200122
  Serious: Yes (Other)
  Sender: FDA-Public Use
  Company Number: DE-BRISTOL-MYERS SQUIBB COMPANY-BMS-2019-093681

PATIENT
  Sex: Male
  Weight: 70 kg

DRUGS (13)
  1. PANTOPRAZOL KREWEL [Suspect]
     Active Substance: PANTOPRAZOLE SODIUM
     Indication: GASTROINTESTINAL DISORDER PROPHYLAXIS
     Dosage: 40 MILLIGRAM, DAILY
     Route: 065
     Dates: start: 20171119
  2. TORASEMID AAA-PHARMA [Suspect]
     Active Substance: TORSEMIDE
     Indication: CARDIAC FAILURE
     Dosage: 10 MILLIGRAM DAILY
     Route: 065
     Dates: start: 20171119
  3. AMIODARON HEUMANN [Suspect]
     Active Substance: AMIODARONE HYDROCHLORIDE
     Indication: ARRHYTHMIA
     Route: 065
  4. TAMSULOSIN AUROBINDO [Suspect]
     Active Substance: TAMSULOSIN HYDROCHLORIDE
     Indication: BENIGN PROSTATIC HYPERPLASIA
     Dosage: 0.4 MILLIGRAM, DAILY
     Route: 065
     Dates: start: 20000101
  5. EPLERENON ZENTIVA [Suspect]
     Active Substance: EPLERENONE
     Indication: CARDIAC FAILURE
     Dosage: 25 MILLIGRAM, DAILY
     Route: 065
     Dates: start: 20171119
  6. CARVEDILOL HEUMANN [Suspect]
     Active Substance: CARVEDILOL
     Indication: CARDIAC FAILURE
     Dosage: 6.25 MILLIGRAM, DAILY
     Route: 065
     Dates: start: 20171119
  7. NOVAMINSULFON LICHTENSTEIN [Suspect]
     Active Substance: METAMIZOLE SODIUM
     Indication: PRODUCT USED FOR UNKNOWN INDICATION
     Dosage: 1000 MILLIGRAM, DAILY
     Route: 065
     Dates: start: 20171110
  8. AMIODARON HEUMANN [Suspect]
     Active Substance: AMIODARONE HYDROCHLORIDE
     Indication: TACHYCARDIA
     Dosage: 200 MILLIGRAM, DAILY
     Route: 065
     Dates: start: 20171110
  9. LEVOTHYROXINE. [Suspect]
     Active Substance: LEVOTHYROXINE
     Indication: HYPOTHYROIDISM
     Dosage: 125 MICROGRAM, DAILY
     Route: 065
     Dates: start: 20190313
  10. ELIQUIS [Suspect]
     Active Substance: APIXABAN
     Indication: PRODUCT USED FOR UNKNOWN INDICATION
     Dosage: 10 MILLIGRAM, DAILY
     Route: 065
     Dates: start: 20171110
  11. ENTRESTO [Suspect]
     Active Substance: SACUBITRIL\VALSARTAN
     Indication: CARDIAC FAILURE
     Dosage: 100 MILLIGRAM, DAILY
     Route: 065
     Dates: start: 20171119
  12. FINASTERID HEXAL [Suspect]
     Active Substance: FINASTERIDE
     Indication: BENIGN PROSTATIC HYPERPLASIA
     Dosage: 5 MILLIGRAM, DAILY
     Route: 065
     Dates: start: 20000101
  13. INEGY [Suspect]
     Active Substance: EZETIMIBE\SIMVASTATIN
     Indication: HYPERCHOLESTEROLAEMIA
     Dosage: 5 MILLIGRAM, DAILY
     Route: 065
     Dates: start: 20000101

REACTIONS (11)
  - Hypotension [Not Recovered/Not Resolved]
  - Rash [Not Recovered/Not Resolved]
  - Palatal swelling [Not Recovered/Not Resolved]
  - Dyspnoea [Not Recovered/Not Resolved]
  - Rash vesicular [Not Recovered/Not Resolved]
  - Nausea [Not Recovered/Not Resolved]
  - Swelling face [Not Recovered/Not Resolved]
  - Vertigo [Not Recovered/Not Resolved]
  - Dysphagia [Not Recovered/Not Resolved]
  - Swollen tongue [Not Recovered/Not Resolved]
  - Fatigue [Not Recovered/Not Resolved]

NARRATIVE: CASE EVENT DATE: 20171201
